FAERS Safety Report 17223711 (Version 1)
Quarter: 2019Q4

REPORT INFORMATION
  Report Type: Spontaneous
  Country: US (occurrence: US)
  Receive Date: 20191209
  Receipt Date: 20191209
  Transmission Date: 20200122
  Serious: Yes (Hospitalization)
  Sender: FDA-Public Use
  Company Number: None

PATIENT
  Sex: Male

DRUGS (10)
  1. CLOBETASOL [Concomitant]
     Active Substance: CLOBETASOL
  2. ENBREL [Concomitant]
     Active Substance: ETANERCEPT
  3. GABAPENTIN. [Concomitant]
     Active Substance: GABAPENTIN
  4. BETHAMETH DIP OIN [Concomitant]
  5. CEPHALEXIN. [Concomitant]
     Active Substance: CEPHALEXIN
  6. TRIAMCINOLON [Concomitant]
  7. KETOCONZOLE [Concomitant]
  8. ANORO ELIP AER [Concomitant]
  9. HUMIRA [Suspect]
     Active Substance: ADALIMUMAB
     Indication: PSORIATIC ARTHROPATHY
     Route: 058
     Dates: start: 20190215
  10. OXYBUTYNIN. [Concomitant]
     Active Substance: OXYBUTYNIN CHLORIDE

REACTIONS (2)
  - Drug hypersensitivity [None]
  - Palmoplantar pustulosis [None]
